FAERS Safety Report 5843244-4 (Version None)
Quarter: 2008Q3

REPORT INFORMATION
  Report Type: 
  Country: None (occurrence: None)
  Receive Date: 20080813
  Receipt Date: 20080807
  Transmission Date: 20090109
  Serious: Yes (Hospitalization, Other)
  Sender: FDA-Public Use
  Company Number: PHEH2008US06485

PATIENT
  Age: 80 Year
  Sex: Female

DRUGS (1)
  1. ZADITOR [Suspect]

REACTIONS (12)
  - CARDIAC DISORDER [None]
  - CONDITION AGGRAVATED [None]
  - DIABETES MELLITUS [None]
  - DRUG INEFFECTIVE [None]
  - HEARING IMPAIRED [None]
  - HERPES ZOSTER [None]
  - MEMORY IMPAIRMENT [None]
  - OCULAR HYPERAEMIA [None]
  - PAIN [None]
  - PHYSIOTHERAPY [None]
  - VISION BLURRED [None]
  - VISUAL IMPAIRMENT [None]
